FAERS Safety Report 5458137-4 (Version None)
Quarter: 2007Q3

REPORT INFORMATION
  Report Type: 
  Country: None (occurrence: None)
  Receive Date: 20070917
  Receipt Date: 20070903
  Transmission Date: 20080115
  Serious: Yes (Life-Threatening)
  Sender: FDA-Public Use
  Company Number: 100#03#2007-03461

PATIENT
  Age: 64 Year
  Sex: Male

DRUGS (4)
  1. LITHIUM CARBONATE [Suspect]
     Indication: HYPOMANIA
     Dosage: 800 MG (400 MG TWO TIMES PER DAY);  LONG TERM
  2. RAMIPRIL [Suspect]
     Indication: DRUG USE FOR UNKNOWN INDICATION
  3. FUROSEMIDE [Suspect]
     Indication: DIURETIC THERAPY
  4. AMILORIDE (AMILORIDE) (AMILORIDE) [Concomitant]

REACTIONS (15)
  - ANTIPSYCHOTIC DRUG LEVEL INCREASED [None]
  - BLOOD CREATININE INCREASED [None]
  - BLOOD UREA INCREASED [None]
  - CONFUSIONAL STATE [None]
  - DRUG INTERACTION [None]
  - HAEMODIALYSIS [None]
  - HAEMODYNAMIC INSTABILITY [None]
  - MOOD SWINGS [None]
  - NEPHROGENIC DIABETES INSIPIDUS [None]
  - PNEUMOTHORAX [None]
  - RESPIRATORY FAILURE [None]
  - SEPSIS [None]
  - SOMNOLENCE [None]
  - THERAPEUTIC AGENT TOXICITY [None]
  - WHITE BLOOD CELL COUNT INCREASED [None]
